FAERS Safety Report 8623866-8 (Version None)
Quarter: 2012Q3

REPORT INFORMATION
  Report Type: 
  Country: None (occurrence: None)
  Receive Date: 20120827
  Receipt Date: 20120816
  Transmission Date: 20120928
  Serious: Yes (Other)
  Sender: FDA-Public Use
  Company Number: US-NOVOPROD-358247

PATIENT
  Age: 67 Year
  Sex: Female
  Weight: 71.655 kg

DRUGS (1)
  1. VAGIFEM [Suspect]
     Indication: VULVOVAGINAL DRYNESS
     Dosage: 10 A?G, BIW
     Route: 067
     Dates: start: 20090101

REACTIONS (1)
  - TRANSIENT ISCHAEMIC ATTACK [None]
